FAERS Safety Report 22620485 (Version 1)
Quarter: 2023Q2

REPORT INFORMATION
  Report Type: Spontaneous
  Country: PT (occurrence: PT)
  Receive Date: 20230620
  Receipt Date: 20230620
  Transmission Date: 20230722
  Serious: Yes (Other)
  Sender: FDA-Public Use
  Company Number: PT-BBM-PT-BBM-202320841

PATIENT
  Age: 83 Year
  Sex: Female

DRUGS (3)
  1. LINEZOLID [Suspect]
     Active Substance: LINEZOLID
     Indication: Intervertebral discitis
     Dosage: MAINTENANCE FOR 3 WEEKS
  2. METRONIDAZOLE [Concomitant]
     Active Substance: METRONIDAZOLE
     Indication: Intervertebral discitis
     Dosage: UNK
  3. CEFTRIAXONE [Concomitant]
     Active Substance: CEFTRIAXONE
     Indication: Intervertebral discitis
     Dosage: UNK

REACTIONS (6)
  - Lactic acidosis [Recovering/Resolving]
  - Toxicity to various agents [Recovering/Resolving]
  - Myelosuppression [Recovering/Resolving]
  - Septic shock [Recovering/Resolving]
  - Bicytopenia [Recovering/Resolving]
  - Ecthyma [Recovering/Resolving]
